FAERS Safety Report 7640782 (Version 19)
Quarter: 2013Q4

REPORT INFORMATION
  Report Type: Report from Study
  Country: ZA (occurrence: ZA)
  Receive Date: 20101026
  Receipt Date: 20131205
  Transmission Date: 20140711
  Serious: Yes (Hospitalization, Other)
  Sender: FDA-Public Use
  Company Number: PHHO2010ZA15903

PATIENT
  Sex: 0

DRUGS (15)
  1. AMN107 [Suspect]
     Indication: GASTROINTESTINAL STROMAL TUMOUR
     Dosage: 400 MG, BID
     Route: 048
     Dates: start: 20101013, end: 20101014
  2. AMN107 [Suspect]
     Dosage: 400 MG, QD
  3. AMN107 [Suspect]
     Dosage: 400 MG, BID
     Route: 048
     Dates: end: 201011
  4. AMN107 [Suspect]
     Dosage: 400 MG, QD
     Route: 048
     Dates: start: 20101119, end: 20110411
  5. STI571 [Suspect]
     Indication: GASTROINTESTINAL STROMAL TUMOUR
     Dosage: 400 MG, QD
     Route: 048
     Dates: start: 20110416, end: 20110417
  6. STI571 [Suspect]
     Dosage: 400 MG, DAILY
     Route: 048
     Dates: start: 20110421, end: 20111102
  7. MORPHINE [Suspect]
     Dosage: UNK
  8. ZAFOR [Suspect]
     Indication: NAUSEA
     Dosage: 400 MG, PRN
     Route: 048
     Dates: start: 20101017, end: 20101026
  9. LENTOGESIC [Suspect]
     Indication: PAIN
     Dosage: UNK
     Route: 048
     Dates: start: 20101012, end: 20101026
  10. DUROGESIC [Suspect]
     Dosage: UNK
  11. OMEPRAZOLE [Concomitant]
     Indication: DYSPEPSIA
     Dosage: 20 MG, QD
     Dates: start: 20101026
  12. SUCRALFATE [Concomitant]
     Indication: DYSPEPSIA
     Dosage: UNK
  13. IRON SUPPLEMENTS [Concomitant]
     Dosage: UNK
  14. RABEPRAZOLE [Concomitant]
     Indication: DYSPEPSIA
     Dosage: UNK
  15. CALCIUM [Concomitant]
     Dosage: UNK

REACTIONS (8)
  - Intestinal obstruction [Recovered/Resolved]
  - Vomiting [Not Recovered/Not Resolved]
  - Nausea [Not Recovered/Not Resolved]
  - Hypophagia [Recovered/Resolved]
  - Pyrexia [Recovered/Resolved]
  - Constipation [Not Recovered/Not Resolved]
  - Abdominal pain [Not Recovered/Not Resolved]
  - Malignant neoplasm progression [Not Recovered/Not Resolved]
